FAERS Safety Report 10055894 (Version 3)
Quarter: 2014Q4

REPORT INFORMATION
  Report Type: Report from Study
  Country: RU (occurrence: RU)
  Receive Date: 20140403
  Receipt Date: 20141104
  Transmission Date: 20150528
  Serious: Yes (Life-Threatening, Hospitalization, Other)
  Sender: FDA-Public Use
  Company Number: RU-JNJFOC-20130905150

PATIENT
  Sex: Female
  Weight: 71 kg

DRUGS (13)
  1. RIVAROXABAN [Suspect]
     Active Substance: RIVAROXABAN
     Indication: CARDIOVASCULAR EVENT PROPHYLAXIS
     Route: 048
  2. DIUVER [Concomitant]
     Active Substance: TORSEMIDE
     Route: 065
     Dates: start: 20120101
  3. CONCOR [Concomitant]
     Active Substance: BISOPROLOL FUMARATE
     Route: 065
     Dates: start: 20120101, end: 20130701
  4. CORDARONE [Concomitant]
     Active Substance: AMIODARONE HYDROCHLORIDE
     Route: 065
     Dates: start: 20121102
  5. PRESTARIUM [Concomitant]
     Active Substance: PERINDOPRIL
     Route: 065
     Dates: start: 20120101
  6. NORMODIPINE [Concomitant]
     Route: 065
     Dates: start: 20120101, end: 20130617
  7. ATENOLOL. [Concomitant]
     Active Substance: ATENOLOL
     Route: 065
     Dates: start: 20130617
  8. DIGOXIN. [Concomitant]
     Active Substance: DIGOXIN
     Route: 065
     Dates: start: 20121226
  9. RIVAROXABAN [Suspect]
     Active Substance: RIVAROXABAN
     Indication: CARDIOVASCULAR EVENT PROPHYLAXIS
     Route: 048
     Dates: start: 20121201
  10. VEROSPIRON [Concomitant]
     Active Substance: SPIRONOLACTONE
     Route: 065
     Dates: start: 20130617
  11. ATORIS [Concomitant]
     Active Substance: ATORVASTATIN CALCIUM
     Route: 065
     Dates: start: 20120101
  12. RIVAROXABAN [Suspect]
     Active Substance: RIVAROXABAN
     Indication: ATRIAL FIBRILLATION
     Route: 048
  13. RIVAROXABAN [Suspect]
     Active Substance: RIVAROXABAN
     Indication: ATRIAL FIBRILLATION
     Route: 048
     Dates: start: 20121201

REACTIONS (2)
  - Pulmonary embolism [Recovering/Resolving]
  - Epistaxis [Recovered/Resolved]

NARRATIVE: CASE EVENT DATE: 20130303
